FAERS Safety Report 5256404-0 (Version None)
Quarter: 2007Q1

REPORT INFORMATION
  Report Type: 
  Country: None (occurrence: None)
  Receive Date: 20061204
  Receipt Date: 20061018
  Transmission Date: 20070707
  Serious: No
  Sender: FDA-Public Use
  Company Number: 2006-BP10685PF

PATIENT
  Age: 85 Year
  Sex: Male

DRUGS (22)
  1. SPIRIVA [Suspect]
     Indication: ASBESTOSIS
     Dosage: 18 MCG (18 MCG, 1 IN 1 D); IN
     Route: 055
  2. SPIRIVA [Suspect]
     Indication: DYSPNOEA
     Dosage: 18 MCG (18 MCG, 1 IN 1 D); IN
     Route: 055
  3. OXYGEN (OXYGEN) [Concomitant]
  4. COMBIVENT/COMBIVENT/01261001 [Concomitant]
  5. NEXIUM [Concomitant]
  6. SYNTHROID [Concomitant]
  7. LASIX [Concomitant]
  8. GLYCOLAX (MACROGOL) [Concomitant]
  9. ASPIRIN [Concomitant]
  10. DOCUSATE SODIUM (DOCUSATE SODIUM) [Concomitant]
  11. ALTACE [Concomitant]
  12. SINGULAIR [Concomitant]
  13. ALLOPURINOL [Concomitant]
  14. PLAVIX [Concomitant]
  15. LOVASTIN (LOVASTATIN) [Concomitant]
  16. PACERONE [Concomitant]
  17. KADIAN [Concomitant]
  18. DARVOCET [Concomitant]
  19. NITROQUICK (GLYCERYL TRINITRATE) [Concomitant]
  20. CIPRODEX (CIPRODEX /01633401) [Concomitant]
  21. ANUCORT -HC (HYDROCORTISONE ACETATE) [Concomitant]
  22. FENTANYL PATCH (FENTANYL) [Concomitant]

REACTIONS (8)
  - ABDOMINAL PAIN [None]
  - BLOOD URINE PRESENT [None]
  - CONSTIPATION [None]
  - DRY MOUTH [None]
  - DYSPNOEA [None]
  - NAUSEA [None]
  - URINARY TRACT INFECTION [None]
  - VOMITING [None]
